FAERS Safety Report 19899588 (Version 3)
Quarter: 2022Q4

REPORT INFORMATION
  Report Type: Spontaneous
  Country: DE (occurrence: DE)
  Receive Date: 20210929
  Receipt Date: 20221212
  Transmission Date: 20230113
  Serious: Yes (Hospitalization)
  Sender: FDA-Public Use
  Company Number: DE-ADRED-06388-02

PATIENT
  Age: 57 Year
  Sex: Female

DRUGS (17)
  1. FUROSEMIDE [Suspect]
     Active Substance: FUROSEMIDE
     Indication: Product used for unknown indication
     Dosage: 40 MG, 2-2-0.5-0, TABLET
     Route: 048
  2. SPIRONOLACTONE [Suspect]
     Active Substance: SPIRONOLACTONE
     Indication: Product used for unknown indication
     Dosage: 50 MG, 2-2-0-0, TABLET
     Route: 048
  3. XIPAMIDE [Suspect]
     Active Substance: XIPAMIDE
     Indication: Product used for unknown indication
     Dosage: 10 MG, 1-0-0-0, TABLET
     Route: 048
  4. PANTOPRAZOLE SODIUM [Concomitant]
     Active Substance: PANTOPRAZOLE SODIUM
     Dosage: 40 MG, 1-0-0-0, TABLET
     Route: 048
  5. BISOPROLOL [Concomitant]
     Active Substance: BISOPROLOL
     Dosage: 2.5 MG, 0-0-1-0, TABLET
     Route: 048
  6. LEVOTHYROXINE SODIUM [Concomitant]
     Active Substance: LEVOTHYROXINE SODIUM
     Dosage: 100 ?G, 1.5-0-0-0, TABLET
     Route: 048
  7. CHOLECALCIFEROL [Concomitant]
     Active Substance: CHOLECALCIFEROL
     Dosage: 1000 IE, 1-0-0-0, TABLET
     Route: 048
  8. Hepa-merz [Concomitant]
     Dosage: 1-1-1-0, TABLET
     Route: 048
  9. LANTUS [Concomitant]
     Active Substance: INSULIN GLARGINE
     Dosage: 16 IE, 0-0-16-0, SOLUTION FOR INJECTION/INFUSION
     Route: 058
  10. HUMALOG [Concomitant]
     Active Substance: INSULIN LISPRO
     Dosage: ACC BZ PRESUMABLY BLOOD GLUCOSE IU ACC REGIMEN
     Route: 058
  11. NALOXONE HYDROCHLORIDE\OXYCODONE HYDROCHLORIDE [Concomitant]
     Active Substance: NALOXONE HYDROCHLORIDE\OXYCODONE HYDROCHLORIDE
     Dosage: 5 PER 10 MG, 1-0-1-0, TABLET
     Route: 048
  12. METAMIZOL [Concomitant]
     Active Substance: METAMIZOLE SODIUM
     Dosage: 500 MG, 2-2-2-0, TABLET
     Route: 048
  13. POTASSIUM CHLORIDE [Concomitant]
     Active Substance: POTASSIUM CHLORIDE
     Dosage: 600 MG, 3-3-3-0, RETARD-TABLET
     Route: 048
  14. PYRIDOXINE\THIAMINE [Concomitant]
     Active Substance: PYRIDOXINE\THIAMINE
     Dosage: 100 MG, 1-0-1-0, TABLET
     Route: 048
  15. ELIQUIS [Concomitant]
     Active Substance: APIXABAN
     Dosage: 2.5 MG, 1-0-1-0, TABLET
     Route: 048
  16. LACTULOSE [Concomitant]
     Active Substance: LACTULOSE
     Dosage: IF NECESSARY, ENEMAS
     Route: 065
  17. CALCIUM [Concomitant]
     Active Substance: CALCIUM
     Dosage: 2-0-0-0, EFFERVESCENT TABLETS
     Route: 048

REACTIONS (7)
  - Weight increased [Unknown]
  - Pain [Unknown]
  - Hepatic cirrhosis [Unknown]
  - Hypoalbuminaemia [Unknown]
  - Generalised oedema [Unknown]
  - Oedema peripheral [Unknown]
  - Acute kidney injury [Unknown]
